FAERS Safety Report 7545269-X (Version None)
Quarter: 2011Q2

REPORT INFORMATION
  Report Type: 
  Country: None (occurrence: None)
  Receive Date: 20110614
  Receipt Date: 20110606
  Transmission Date: 20111010
  Serious: Yes (Death)
  Sender: FDA-Public Use
  Company Number: JP-JNJFOC-20110412088

PATIENT
  Age: 60 Year
  Sex: Female

DRUGS (2)
  1. FENTANYL [Suspect]
     Dosage: ONE DAY MATRIX PATCH
     Route: 062
  2. FENTANYL [Suspect]
     Indication: CANCER PAIN
     Route: 062
     Dates: start: 20110115

REACTIONS (3)
  - LARGE INTESTINE CARCINOMA [None]
  - DEPRESSED MOOD [None]
  - NAUSEA [None]
